FAERS Safety Report 7733404-X (Version None)
Quarter: 2011Q3

REPORT INFORMATION
  Report Type: 
  Country: None (occurrence: None)
  Receive Date: 20110902
  Receipt Date: 20110902
  Transmission Date: 20111222
  Serious: Yes (Death)
  Sender: FDA-Public Use
  Company Number: None

PATIENT
  Age: 85 Year
  Sex: Male
  Weight: 79.3795 kg

DRUGS (1)
  1. PRADAXA [Suspect]
     Indication: THROMBOSIS PROPHYLAXIS
     Dosage: 150 MG 1-2X DAY -
     Dates: start: 20110602, end: 20110725

REACTIONS (3)
  - BLOOD BRAIN BARRIER DEFECT [None]
  - GASTROINTESTINAL HAEMORRHAGE [None]
  - CEREBRAL HAEMORRHAGE [None]
